FAERS Safety Report 7902623-1 (Version None)
Quarter: 2011Q4

REPORT INFORMATION
  Report Type: 
  Country: None (occurrence: None)
  Receive Date: 20111108
  Receipt Date: 20110831
  Transmission Date: 20120403
  Serious: Yes (Hospitalization)
  Sender: FDA-Public Use
  Company Number: US-ROCHE-1008935

PATIENT
  Age: 72 Year
  Sex: Female
  Weight: 74 kg

DRUGS (2)
  1. MINT1526A (ANTI-A5B1) [Suspect]
     Indication: METASTATIC NEOPLASM
     Dosage: DATE OF LAST DOSE PRIOR TO SAE: 16/MAR/2011
     Route: 042
     Dates: start: 20110201
  2. AVASTIN [Suspect]
     Indication: METASTATIC NEOPLASM

REACTIONS (1)
  - INCISIONAL HERNIA [None]
